FAERS Safety Report 8612048-1 (Version None)
Quarter: 2012Q3

REPORT INFORMATION
  Report Type: 
  Country: None (occurrence: None)
  Receive Date: 20120809
  Receipt Date: 20120727
  Transmission Date: 20120928
  Serious: Yes (Life-Threatening, Hospitalization)
  Sender: FDA-Public Use
  Company Number: PT-008085

PATIENT
  Age: 78 Year
  Sex: Male

DRUGS (13)
  1. FIRMAGON [Suspect]
     Indication: PROSTATE CANCER METASTATIC
     Dosage: (240 MG QD SUBCUTANEOUS) ; (80 MG 1X/MONTH SUBCUTANEOUS)
     Route: 058
     Dates: start: 20120403
  2. FIRMAGON [Suspect]
     Indication: PROSTATE CANCER METASTATIC
     Dosage: (240 MG QD SUBCUTANEOUS) ; (80 MG 1X/MONTH SUBCUTANEOUS)
     Route: 058
     Dates: start: 20120305, end: 20120305
  3. ESTRAMUSTINE PHOSPHATE SODIUM (ESTRAMUSTINE) 140 MG [Suspect]
     Indication: PROSTATE CANCER
     Dosage: (280 MG TID ORAL)
     Route: 048
     Dates: start: 20120201, end: 20120214
  4. ACETYLSALICYLIC ACID SRT [Concomitant]
  5. BISOPROLOL FUMARATE [Concomitant]
  6. NEUPOGEN [Concomitant]
  7. LISINOPRIL [Concomitant]
  8. CALCIUM CARBONATE [Concomitant]
  9. BICALUTAMIDE [Concomitant]
  10. DARBEPOETIN ALFA [Concomitant]
  11. ESOMEPRAZOLE SODIUM [Concomitant]
  12. ALLOPURINOL [Concomitant]
  13. CALCITRIOL [Concomitant]

REACTIONS (5)
  - LIVER DISORDER [None]
  - PUNCTURE SITE HAEMORRHAGE [None]
  - THROMBOCYTOPENIA [None]
  - PYREXIA [None]
  - NEUTROPENIA [None]
